FAERS Safety Report 15476742 (Version 1)
Quarter: 2018Q4

REPORT INFORMATION
  Report Type: Spontaneous
  Country: US (occurrence: US)
  Receive Date: 20181001
  Receipt Date: 20181001
  Transmission Date: 20190205
  Serious: No
  Sender: FDA-Public Use
  Company Number: None

PATIENT
  Age: 72 Year
  Sex: Female

DRUGS (1)
  1. CAPECITABINE TAB  500MG [Suspect]
     Active Substance: CAPECITABINE
     Dosage: ?          OTHER FREQUENCY:OTHER;?
     Route: 048
     Dates: start: 20180619

REACTIONS (4)
  - Palmar-plantar erythrodysaesthesia syndrome [None]
  - Balance disorder [None]
  - Blister [None]
  - Dizziness [None]

NARRATIVE: CASE EVENT DATE: 20180922
